FAERS Safety Report 13587175 (Version 1)
Quarter: 2017Q2

REPORT INFORMATION
  Report Type: Spontaneous
  Country: US (occurrence: US)
  Receive Date: 20170526
  Receipt Date: 20170526
  Transmission Date: 20170830
  Serious: No
  Sender: FDA-Public Use
  Company Number: US-009507513-1705USA001010

PATIENT
  Age: 73 Year
  Sex: Male

DRUGS (2)
  1. ELIQUIS [Concomitant]
     Active Substance: APIXABAN
  2. BELSOMRA [Suspect]
     Active Substance: SUVOREXANT
     Indication: INSOMNIA
     Dosage: TOOK 1 TABLET BEFORE BED
     Route: 048
     Dates: start: 20170430

REACTIONS (4)
  - Sensory disturbance [Unknown]
  - Sleep paralysis [Unknown]
  - Abnormal dreams [Unknown]
  - Photopsia [Unknown]

NARRATIVE: CASE EVENT DATE: 20170430
